FAERS Safety Report 21357974 (Version 1)
Quarter: 2022Q3

REPORT INFORMATION
  Report Type: Spontaneous
  Country: US (occurrence: US)
  Receive Date: 20220921
  Receipt Date: 20220921
  Transmission Date: 20221027
  Serious: No
  Sender: FDA-Public Use
  Company Number: US-NOVARTISTESTPH-NVSC2022US212978

PATIENT
  Age: 73 Year
  Sex: Male

DRUGS (2)
  1. LEQVIO [Suspect]
     Active Substance: INCLISIRAN SODIUM
     Indication: Hyperlipidaemia
     Dosage: 284 MG, (ONE SINGLE DOSE)
     Route: 058
     Dates: start: 20220408
  2. LEQVIO [Suspect]
     Active Substance: INCLISIRAN SODIUM
     Dosage: UNK
     Route: 065
     Dates: start: 20220715

REACTIONS (1)
  - Low density lipoprotein increased [Recovered/Resolved]

NARRATIVE: CASE EVENT DATE: 20220907
